FAERS Safety Report 4311553-6 (Version None)
Quarter: 2004Q1

REPORT INFORMATION
  Report Type: 
  Country: None (occurrence: None)
  Receive Date: 20040303
  Receipt Date: 20040303
  Transmission Date: 20041129
  Serious: Yes (Hospitalization)
  Sender: FDA-Public Use
  Company Number: None

PATIENT
  Age: 72 Year
  Sex: Female

DRUGS (9)
  1. DILTIAZEM [Suspect]
     Indication: BLOOD PRESSURE
     Dosage: 360 MG DAILY ORAL
     Route: 048
  2. AMLODIPINE [Suspect]
     Indication: BLOOD PRESSURE
     Dosage: 10 MG DAILY ORAL
     Route: 048
  3. ROSGLITAZONE [Concomitant]
  4. AMLODIPINE [Concomitant]
  5. DILTIAZEM [Concomitant]
  6. CLOPIDOGREL [Concomitant]
  7. PAROXETINE HCL [Concomitant]
  8. INSULIN GLARGINE [Concomitant]
  9. BENAZEPRIL HCL [Concomitant]

REACTIONS (6)
  - ABDOMINAL PAIN UPPER [None]
  - ATRIOVENTRICULAR BLOCK FIRST DEGREE [None]
  - BRADYCARDIA [None]
  - DIZZINESS [None]
  - DYSPNOEA [None]
  - VENTRICULAR EXTRASYSTOLES [None]
